FAERS Safety Report 5421180-5 (Version None)
Quarter: 2007Q3

REPORT INFORMATION
  Report Type: 
  Country: None (occurrence: None)
  Receive Date: 20070821
  Receipt Date: 20070817
  Transmission Date: 20080115
  Serious: Yes (Death)
  Sender: FDA-Public Use
  Company Number: GB-ASTRAZENECA-2007GB01532

PATIENT
  Age: 40 Year
  Sex: Female

DRUGS (1)
  1. SEROQUEL [Suspect]
     Indication: SCHIZOPHRENIA
     Dosage: 350 MG MANE, 400 MG NOCTE
     Route: 048
     Dates: start: 20070401, end: 20070719

REACTIONS (1)
  - ACUTE PROMYELOCYTIC LEUKAEMIA [None]
